FAERS Safety Report 19250596 (Version 1)
Quarter: 2021Q2

REPORT INFORMATION
  Report Type: Spontaneous
  Country: US (occurrence: US)
  Receive Date: 20210512
  Receipt Date: 20210512
  Transmission Date: 20210717
  Serious: No
  Sender: FDA-Public Use
  Company Number: US-RIGEL PHARMACEUTICALS, INC.-2021FOS000186

PATIENT
  Sex: Female
  Weight: 63.49 kg

DRUGS (2)
  1. TAVALISSE [Suspect]
     Active Substance: FOSTAMATINIB
     Indication: IMMUNE THROMBOCYTOPENIA
     Dosage: 150 MG, BID
     Route: 048
     Dates: start: 20190727
  2. TAVALISSE [Suspect]
     Active Substance: FOSTAMATINIB
     Indication: VITAMIN B12 DEFICIENCY

REACTIONS (1)
  - Product dose omission issue [Unknown]
